FAERS Safety Report 22590671 (Version 1)
Quarter: 2023Q2

REPORT INFORMATION
  Report Type: Spontaneous
  Country: PE (occurrence: PE)
  Receive Date: 20230612
  Receipt Date: 20230612
  Transmission Date: 20230721
  Serious: Yes (Hospitalization, Other)
  Sender: FDA-Public Use
  Company Number: PE-009507513-2306PER003413

PATIENT
  Age: 62 Year
  Sex: Male

DRUGS (11)
  1. ERTAPENEM SODIUM [Suspect]
     Active Substance: ERTAPENEM SODIUM
     Indication: Escherichia infection
     Dosage: 1 GRAM, QD
  2. MESALAMINE [Suspect]
     Active Substance: MESALAMINE
     Indication: Colitis ulcerative
     Dosage: UNK
  3. PREDNISONE [Suspect]
     Active Substance: PREDNISONE
     Indication: Colitis ulcerative
     Dosage: 50 MILLIGRAM, QD
  4. PREDNISONE [Suspect]
     Active Substance: PREDNISONE
     Dosage: 20 MILLIGRAM, QD
  5. AZATHIOPRINE [Suspect]
     Active Substance: AZATHIOPRINE
     Indication: Colitis ulcerative
     Dosage: 150 MILLIGRAM, QD
  6. MEROPENEM [Suspect]
     Active Substance: MEROPENEM
     Indication: Retroperitoneal abscess
     Dosage: UNK
  7. MEROPENEM [Suspect]
     Active Substance: MEROPENEM
     Indication: Muscle abscess
  8. MEROPENEM [Suspect]
     Active Substance: MEROPENEM
     Indication: Infective aneurysm
  9. VANCOMYCIN [Suspect]
     Active Substance: VANCOMYCIN
     Indication: Retroperitoneal abscess
  10. VANCOMYCIN [Suspect]
     Active Substance: VANCOMYCIN
     Indication: Muscle abscess
  11. VANCOMYCIN [Suspect]
     Active Substance: VANCOMYCIN
     Indication: Infective aneurysm

REACTIONS (2)
  - Disseminated trichosporonosis [Recovered/Resolved]
  - Drug ineffective [Unknown]
